FAERS Safety Report 17850888 (Version 1)
Quarter: 2020Q2

REPORT INFORMATION
  Report Type: Spontaneous
  Country: US (occurrence: US)
  Receive Date: 20200602
  Receipt Date: 20200602
  Transmission Date: 20200714
  Serious: Yes (Death, Hospitalization, Disabling, Other)
  Sender: FDA-Public Use
  Company Number: None

PATIENT
  Age: 55 Year
  Sex: Female
  Weight: 106.5 kg

DRUGS (1)
  1. REMDESIVIR. [Suspect]
     Active Substance: REMDESIVIR
     Indication: COVID-19
     Route: 051
     Dates: start: 20200513, end: 20200518

REACTIONS (5)
  - Renal impairment [None]
  - Respiratory failure [None]
  - Haemodialysis [None]
  - Multiple organ dysfunction syndrome [None]
  - Blood creatine increased [None]

NARRATIVE: CASE EVENT DATE: 20200515
